FAERS Safety Report 6644021-7 (Version None)
Quarter: 2010Q1

REPORT INFORMATION
  Report Type: 
  Country: None (occurrence: None)
  Receive Date: 20100322
  Receipt Date: 20100316
  Transmission Date: 20100710
  Serious: Yes (Other)
  Sender: FDA-Public Use
  Company Number: CA-SANOFI-AVENTIS-2010SA015059

PATIENT
  Age: 43 Year
  Sex: Female
  Weight: 88.4 kg

DRUGS (5)
  1. TAXOTERE [Suspect]
     Indication: BREAST CANCER
     Route: 042
     Dates: start: 20091006, end: 20091006
  2. TAXOTERE [Suspect]
     Route: 042
     Dates: start: 20091026, end: 20091026
  3. TAXOTERE [Suspect]
     Route: 042
     Dates: start: 20091116, end: 20091116
  4. DALTEPARIN SODIUM [Concomitant]
     Dosage: DOSE:12500 UNIT(S)
     Route: 058
     Dates: start: 20090831, end: 20091231
  5. IMOVANE [Concomitant]
     Indication: INSOMNIA
     Route: 048

REACTIONS (3)
  - LUNG CYST [None]
  - PNEUMONIA [None]
  - PNEUMONITIS [None]
